FAERS Safety Report 11176345 (Version 2)
Quarter: 2015Q3

REPORT INFORMATION
  Report Type: Report from Study
  Country: NZ (occurrence: NZ)
  Receive Date: 20150610
  Receipt Date: 20150701
  Transmission Date: 20151125
  Serious: Yes (Death)
  Sender: FDA-Public Use
  Company Number: PHHY2014NZ094779

PATIENT
  Age: 55 Year
  Sex: Male

DRUGS (5)
  1. CLOZARIL [Suspect]
     Active Substance: CLOZAPINE
     Dosage: 375 MG, QHS
     Route: 048
     Dates: start: 201304, end: 20150521
  2. SODIUM VALPROATE [Concomitant]
     Active Substance: VALPROATE SODIUM
     Indication: HYPERSEXUALITY
     Dosage: 1500 MG, QD
     Route: 048
     Dates: end: 20150521
  3. CYPROTERONE [Concomitant]
     Active Substance: CYPROTERONE
     Indication: HYPERSEXUALITY
     Dosage: 50 MG, BID
     Route: 048
     Dates: start: 2013, end: 20150521
  4. CYPROTERONE [Concomitant]
     Active Substance: CYPROTERONE
     Indication: AFFECTIVE DISORDER
  5. CLOZARIL [Suspect]
     Active Substance: CLOZAPINE
     Indication: SCHIZOPHRENIA
     Dosage: 400 MG, QHS
     Route: 048
     Dates: start: 201302

REACTIONS (8)
  - Bladder cancer [Fatal]
  - Bladder mass [Fatal]
  - Sedation [Unknown]
  - Lethargy [Fatal]
  - Pneumonia [Fatal]
  - General physical health deterioration [Fatal]
  - Drug intolerance [Unknown]
  - Renal impairment [Fatal]

NARRATIVE: CASE EVENT DATE: 201302
